FAERS Safety Report 12293455 (Version 1)
Quarter: 2016Q2

REPORT INFORMATION
  Report Type: Report from Study
  Country: VE (occurrence: VE)
  Receive Date: 20160421
  Receipt Date: 20160421
  Transmission Date: 20160815
  Serious: Yes (Other)
  Sender: FDA-Public Use
  Company Number: VE-ABBVIE-13P-178-1089612-00

PATIENT
  Age: 57 Year
  Sex: Female
  Weight: 83 kg

DRUGS (1)
  1. HUMIRA [Suspect]
     Active Substance: ADALIMUMAB
     Indication: PSORIATIC ARTHROPATHY
     Route: 058
     Dates: start: 20111029, end: 20130509

REACTIONS (4)
  - Drug ineffective [Unknown]
  - Lymphadenopathy [Not Recovered/Not Resolved]
  - Skin injury [Not Recovered/Not Resolved]
  - Tuberculin test positive [Recovering/Resolving]

NARRATIVE: CASE EVENT DATE: 201209
